FAERS Safety Report 12526924 (Version 1)
Quarter: 2016Q3

REPORT INFORMATION
  Report Type: Report from Study
  Country: JP (occurrence: JP)
  Receive Date: 20160705
  Receipt Date: 20160705
  Transmission Date: 20161109
  Serious: Yes (Hospitalization)
  Sender: FDA-Public Use
  Company Number: PHHO2014JP008241

PATIENT
  Age: 50 Year
  Sex: Female
  Weight: 63 kg

DRUGS (11)
  1. ISCOTIN [Suspect]
     Active Substance: ISONIAZID
     Indication: ANTIBIOTIC PROPHYLAXIS
     Dosage: UNK
     Route: 048
     Dates: start: 20130111
  2. BENET [Concomitant]
     Active Substance: RISEDRONATE SODIUM
     Indication: OSTEOPOROSIS PROPHYLAXIS
     Dosage: UNK
     Route: 048
     Dates: start: 20121031
  3. PLACEBO [Suspect]
     Active Substance: UNSPECIFIED INGREDIENT
     Dosage: 150 MG, (EVERY 4 WEEK)
     Route: 058
     Dates: start: 20140410, end: 20140501
  4. CELECO [Concomitant]
     Indication: RHEUMATOID ARTHRITIS
     Dosage: 200 MG, UNK
     Route: 048
     Dates: start: 20121009
  5. PREDNISOLONE. [Concomitant]
     Active Substance: PREDNISOLONE
     Indication: RHEUMATOID ARTHRITIS
     Dosage: 5 MG, UNK
     Route: 048
     Dates: start: 20130321
  6. SELBEX [Concomitant]
     Active Substance: TEPRENONE
     Indication: GASTRITIS PROPHYLAXIS
     Dosage: 1.5 G, UNK
     Route: 048
     Dates: start: 20121031
  7. AIN457 [Suspect]
     Active Substance: SECUKINUMAB
     Indication: RHEUMATOID ARTHRITIS
     Dosage: 75 MG, (EVERY 4 WEEK)
     Route: 058
     Dates: start: 20131017, end: 20140306
  8. AIN457 [Suspect]
     Active Substance: SECUKINUMAB
     Dosage: 75 MG, (EVERY 4 WEEK)
     Route: 058
     Dates: start: 20140410, end: 20140501
  9. PLACEBO [Suspect]
     Active Substance: UNSPECIFIED INGREDIENT
     Indication: RHEUMATOID ARTHRITIS
     Dosage: 150 MG, (EVERY 4 WEEK)
     Route: 058
     Dates: start: 20131017, end: 20140306
  10. RIMATIL [Concomitant]
     Active Substance: BUCILLAMINE
     Indication: RHEUMATOID ARTHRITIS
     Dosage: 200 MG, UNK
     Route: 048
  11. ROCALTROL [Concomitant]
     Active Substance: CALCITRIOL
     Indication: OSTEOPOROSIS PROPHYLAXIS
     Dosage: 0.5 UG, UNK
     Route: 048
     Dates: start: 20121031

REACTIONS (1)
  - Hepatic function abnormal [Recovered/Resolved]

NARRATIVE: CASE EVENT DATE: 20140605
